APPROVED DRUG PRODUCT: OSELTAMIVIR PHOSPHATE
Active Ingredient: OSELTAMIVIR PHOSPHATE
Strength: EQ 6MG BASE/ML
Dosage Form/Route: FOR SUSPENSION;ORAL
Application: A214949 | Product #001
Applicant: LEADING PHARMA LLC
Approved: Feb 28, 2022 | RLD: No | RS: No | Type: DISCN